FAERS Safety Report 6248574-2 (Version None)
Quarter: 2009Q2

REPORT INFORMATION
  Report Type: 
  Country: None (occurrence: None)
  Receive Date: 20090624
  Receipt Date: 20090624
  Transmission Date: 20091009
  Serious: No
  Sender: FDA-Public Use
  Company Number: None

PATIENT
  Age: 50 Year
  Sex: Female
  Weight: 89.9 kg

DRUGS (2)
  1. GABAPENTIN [Suspect]
     Indication: RESTLESS LEGS SYNDROME
     Dosage: 300MG TID PO
     Route: 048
     Dates: start: 20090608
  2. MIRAPEX [Suspect]
     Indication: RESTLESS LEGS SYNDROME
     Dosage: 0.5MG TID PO
     Route: 048
     Dates: start: 20090608

REACTIONS (4)
  - COMPLEX PARTIAL SEIZURES [None]
  - SMALL INTESTINAL OBSTRUCTION [None]
  - TONIC CONVULSION [None]
  - WITHDRAWAL SYNDROME [None]
